FAERS Safety Report 14650736 (Version 2)
Quarter: 2018Q1

REPORT INFORMATION
  Report Type: Spontaneous
  Country: IN (occurrence: IN)
  Receive Date: 20180316
  Receipt Date: 20180321
  Transmission Date: 20180509
  Serious: Yes (Hospitalization)
  Sender: FDA-Public Use
  Company Number: IN-PFIZER INC-2018106130

PATIENT
  Age: 19 Year
  Sex: Male

DRUGS (2)
  1. ATENOLOL. [Suspect]
     Active Substance: ATENOLOL
     Indication: CARDIOVASCULAR DISORDER
     Dosage: 750 MG, UNK
     Route: 048
  2. AMLODIPINE BESILATE [Suspect]
     Active Substance: AMLODIPINE BESYLATE
     Indication: CARDIOVASCULAR DISORDER
     Dosage: 150 MG, UNK
     Route: 048

REACTIONS (4)
  - Shock [Recovering/Resolving]
  - Cardiovascular disorder [Recovering/Resolving]
  - Overdose [Recovering/Resolving]
  - Metabolic acidosis [Recovering/Resolving]
